FAERS Safety Report 6280278-2 (Version None)
Quarter: 2009Q3

REPORT INFORMATION
  Report Type: 
  Country: None (occurrence: None)
  Receive Date: 20090723
  Receipt Date: 20090721
  Transmission Date: 20100115
  Serious: Yes (Hospitalization, Other)
  Sender: FDA-Public Use
  Company Number: US-ASTRAZENECA-2007UW10988

PATIENT
  Age: 10494 Day
  Sex: Male
  Weight: 120.2 kg

DRUGS (28)
  1. SEROQUEL [Suspect]
     Indication: DEPRESSION
     Route: 048
     Dates: start: 20020301, end: 20060516
  2. SEROQUEL [Suspect]
     Indication: SLEEP DISORDER
     Route: 048
     Dates: start: 20020301, end: 20060516
  3. SEROQUEL [Suspect]
     Dosage: 100MG-600 MG
     Route: 048
  4. SEROQUEL [Suspect]
     Dosage: 100MG-600 MG
     Route: 048
  5. HALDOL [Concomitant]
     Route: 048
  6. METFORMIN HCL [Concomitant]
     Route: 048
  7. IBUPROFEN [Concomitant]
     Dosage: 80 MG-400 MG
     Route: 048
  8. TRAZODONE [Concomitant]
  9. ACTOS [Concomitant]
  10. AUGMENTIN [Concomitant]
  11. LORTAB [Concomitant]
  12. CLONIDINE [Concomitant]
     Route: 048
  13. AVANDAMET [Concomitant]
  14. METRONIDAZOLE [Concomitant]
  15. HYDROMORPHONE HCL [Concomitant]
     Dosage: 1 MG/ML
  16. ALBUTEROL [Concomitant]
  17. PREDNISONE TAB [Concomitant]
     Route: 048
  18. AMITRIPTYLINE HCL [Concomitant]
  19. ZANTAC [Concomitant]
  20. LANTUS [Concomitant]
  21. PROMETHAZINE [Concomitant]
     Dosage: 12.5 MG-25 MG
     Route: 042
  22. POTASSIUM CHLORIDE [Concomitant]
  23. TARADOL [Concomitant]
  24. AVANDIA [Concomitant]
     Route: 048
  25. PAXIL [Concomitant]
     Route: 048
  26. GLIPIZIDE [Concomitant]
     Route: 048
  27. GLYBURIDE [Concomitant]
     Route: 048
  28. LISINOPRIL [Concomitant]
     Route: 048

REACTIONS (14)
  - DIABETIC NEUROPATHY [None]
  - DYSURIA [None]
  - FATIGUE [None]
  - OBESITY [None]
  - OVERDOSE [None]
  - POLLAKIURIA [None]
  - SCROTAL PAIN [None]
  - SCROTAL SWELLING [None]
  - SUICIDAL IDEATION [None]
  - SUICIDE ATTEMPT [None]
  - TESTICULAR DISORDER [None]
  - TYPE 2 DIABETES MELLITUS [None]
  - VISION BLURRED [None]
  - WEIGHT INCREASED [None]
